FAERS Safety Report 4694143-5 (Version None)
Quarter: 2005Q2

REPORT INFORMATION
  Report Type: 
  Country: None (occurrence: None)
  Receive Date: 20050616
  Receipt Date: 20041222
  Transmission Date: 20051028
  Serious: Yes (Other)
  Sender: FDA-Public Use
  Company Number: 800230

PATIENT
  Age: 66 Year
  Sex: Male

DRUGS (9)
  1. EXTRANEAL [Suspect]
     Indication: PERITONEAL DIALYSIS
     Dosage: 2.5 L; QD; INTRAPERITONEAL
     Route: 033
     Dates: start: 20041218, end: 20041221
  2. EXTRANEAL [Suspect]
     Indication: PERITONEAL DIALYSIS
     Dosage: 2.5 L; QD; INTRAPERITONEAL
     Route: 033
     Dates: start: 20041218, end: 20041221
  3. DIANEAL 2.5% UB [Concomitant]
  4. EPOGEN [Concomitant]
  5. LASIX [Concomitant]
  6. NIFEDIPINE [Concomitant]
  7. SIMVASTATIN [Concomitant]
  8. POTASSIUM CHLORIDE [Concomitant]
  9. IRON [Concomitant]

REACTIONS (1)
  - ABDOMINAL PAIN [None]
